FAERS Safety Report 11818792 (Version 1)
Quarter: 2015Q4

REPORT INFORMATION
  Report Type: Spontaneous
  Country: US (occurrence: None)
  Receive Date: 20151209
  Receipt Date: 20151209
  Transmission Date: 20160305
  Serious: Yes (Hospitalization)
  Sender: FDA-Public Use
  Company Number: None

PATIENT
  Age: 81 Year
  Sex: Female
  Weight: 101.6 kg

DRUGS (13)
  1. VITAMIN C [Concomitant]
     Active Substance: ASCORBIC ACID
  2. CARAFATE [Concomitant]
     Active Substance: SUCRALFATE
  3. APAP [Concomitant]
     Active Substance: ACETAMINOPHEN
  4. IMDUR [Concomitant]
     Active Substance: ISOSORBIDE MONONITRATE
  5. NEURONTIN [Concomitant]
     Active Substance: GABAPENTIN
  6. VITAMIN D3 [Concomitant]
     Active Substance: CHOLECALCIFEROL
  7. VITAMIN D [Concomitant]
     Active Substance: CHOLECALCIFEROL
  8. FERROUS SULFATE [Concomitant]
     Active Substance: FERROUS SULFATE\FERROUS SULFATE, DRIED
  9. AMARYL [Concomitant]
     Active Substance: GLIMEPIRIDE
  10. PROTONIX [Concomitant]
     Active Substance: PANTOPRAZOLE SODIUM
  11. COUMADIN [Suspect]
     Active Substance: WARFARIN SODIUM
     Indication: EMBOLISM VENOUS
     Dosage: CHRONIC
     Route: 048
  12. COUMADIN [Suspect]
     Active Substance: WARFARIN SODIUM
     Indication: DISEASE RECURRENCE
     Dosage: CHRONIC
     Route: 048
  13. LOPRESSOR [Concomitant]
     Active Substance: METOPROLOL TARTRATE

REACTIONS (3)
  - Duodenal ulcer haemorrhage [None]
  - Haemoglobin abnormal [None]
  - Haematocrit abnormal [None]

NARRATIVE: CASE EVENT DATE: 20150616
